FAERS Safety Report 4301615-1 (Version None)
Quarter: 2004Q1

REPORT INFORMATION
  Report Type: 
  Country: None (occurrence: None)
  Receive Date: 20040219
  Receipt Date: 20040203
  Transmission Date: 20041129
  Serious: Yes (Hospitalization)
  Sender: FDA-Public Use
  Company Number: 185164

PATIENT
  Age: 45 Year
  Sex: Female

DRUGS (15)
  1. AVONEX [Suspect]
     Indication: MULTIPLE SCLEROSIS
     Dosage: 30 MCG QW IM
     Route: 030
     Dates: start: 20031028, end: 20031028
  2. SOMA [Concomitant]
  3. ATIVAN [Concomitant]
  4. ZANAFLEX [Concomitant]
  5. DARVOCET-N 100 [Concomitant]
  6. HYDROXYZINE [Concomitant]
  7. ULTRAM [Concomitant]
  8. FLOVENT [Concomitant]
  9. ALBUTEROL [Concomitant]
  10. OSCAL [Concomitant]
  11. SINGULAIR [Concomitant]
  12. CARAFATE [Concomitant]
  13. LIBRAX [Concomitant]
  14. ACIPHEX [Concomitant]
  15. REGLAN [Concomitant]

REACTIONS (15)
  - ABDOMINAL PAIN UPPER [None]
  - ADVERSE DRUG REACTION [None]
  - ALANINE AMINOTRANSFERASE INCREASED [None]
  - ASPARTATE AMINOTRANSFERASE INCREASED [None]
  - BLOOD PRESSURE DECREASED [None]
  - CHILLS [None]
  - DEHYDRATION [None]
  - GASTROENTERITIS [None]
  - HEPATIC ENZYME INCREASED [None]
  - HERPES SIMPLEX [None]
  - PAIN [None]
  - PYREXIA [None]
  - TREMOR [None]
  - URTICARIA [None]
  - VOMITING [None]
